FAERS Safety Report 15498005 (Version 3)
Quarter: 2018Q4

REPORT INFORMATION
  Report Type: Spontaneous
  Country: IT (occurrence: IT)
  Receive Date: 20181015
  Receipt Date: 20181025
  Transmission Date: 20190205
  Serious: Yes (Other)
  Sender: FDA-Public Use
  Company Number: IT-AUROBINDO-AUR-APL-2018-050486

PATIENT
  Age: 38 Year
  Sex: Female

DRUGS (19)
  1. ESTRADIOL VALERATE. [Interacting]
     Active Substance: ESTRADIOL VALERATE
     Indication: HORMONE THERAPY
  2. GESTODENE [Suspect]
     Active Substance: GESTODENE
     Indication: IN VITRO FERTILISATION
     Dosage: 0.03 MILLIGRAM (SCHEDULED TO BE ADMINISTERED FOR 28 DAYS; RECEIVED DURING IN VITRO FERTILIZATION)
     Route: 065
  3. LEVETIRACETAM. [Suspect]
     Active Substance: LEVETIRACETAM
     Indication: GENERALISED TONIC-CLONIC SEIZURE
     Dosage: (3), ONCE A DAY (TID (1000 THRICE DAILY))
     Route: 048
  4. ESTRADIOL VALERATE. [Interacting]
     Active Substance: ESTRADIOL VALERATE
     Indication: ASSISTED REPRODUCTIVE TECHNOLOGY
     Dosage: 4 MILLIGRAM FOR 10 DAYS
     Route: 065
  5. FOLLITROPIN BETA [Suspect]
     Active Substance: FOLLITROPIN
     Indication: HORMONE THERAPY
     Dosage: 300 INTERNATIONAL UNIT (SCHEDULED TO BE ADMINISTERED FOR 8 DAYS; RECEIVED DURING IN VITRO FERTILIZAT
     Route: 065
  6. GESTODENE [Suspect]
     Active Substance: GESTODENE
     Indication: HORMONE THERAPY
  7. CETRORELIX ACETATE [Suspect]
     Active Substance: CETRORELIX ACETATE
     Indication: HORMONE THERAPY
  8. CORIO GONADOTROPINA ALFA [Suspect]
     Active Substance: CHORIOGONADOTROPIN ALFA
     Indication: PRODUCT USED FOR UNKNOWN INDICATION
     Dosage: UNK
     Route: 005
  9. CLOBAZAM. [Concomitant]
     Active Substance: CLOBAZAM
     Indication: EPILEPSY
     Dosage: 20 MILLIGRAM, ONCE A DAY (10 MG, BID)
     Route: 065
  10. LAMOTRIGINE. [Suspect]
     Active Substance: LAMOTRIGINE
     Indication: PARTIAL SEIZURES
     Dosage: 350 MILLIGRAM, ONCE A DAY
     Route: 065
  11. LEVETIRACETAM. [Suspect]
     Active Substance: LEVETIRACETAM
     Dosage: UNK
     Route: 048
  12. ETHINYLESTRADIOL [Suspect]
     Active Substance: ETHINYL ESTRADIOL
     Indication: HORMONE THERAPY
     Dosage: 0.08 MILLIGRAM (0.075 MG, UNK ( (SCHEDULED TO BE ADMINISTERED FOR 28 DAYS; RECEIVED DURING IN VITRO
     Route: 065
  13. CETRORELIX ACETATE [Suspect]
     Active Substance: CETRORELIX ACETATE
     Indication: IN VITRO FERTILISATION
  14. FOLLITROPIN ALFA [Suspect]
     Active Substance: FOLLITROPIN
     Indication: PRODUCT USED FOR UNKNOWN INDICATION
     Dosage: UNK
     Route: 065
  15. LAMOTRIGINE. [Interacting]
     Active Substance: LAMOTRIGINE
     Indication: PARTIAL SEIZURES
     Dosage: 450 MILLIGRAM, ONCE A DAY
     Route: 065
  16. FOLLITROPIN BETA [Suspect]
     Active Substance: FOLLITROPIN
     Indication: IN VITRO FERTILISATION
  17. ETHINYLESTRADIOL [Suspect]
     Active Substance: ETHINYL ESTRADIOL
     Indication: IN VITRO FERTILISATION
  18. CETRORELIX ACETATE [Suspect]
     Active Substance: CETRORELIX ACETATE
     Indication: HYPOTHALAMO-PITUITARY DISORDER
     Dosage: 0.25 MILLIGRAM  (FOR 8 DAYS, RECEIVED DURING IN VITRO FERTILIZATION)
     Route: 016
  19. GANIRELIX [Suspect]
     Active Substance: GANIRELIX
     Indication: PRODUCT USED FOR UNKNOWN INDICATION
     Dosage: UNK
     Route: 065

REACTIONS (6)
  - Seizure [Unknown]
  - Drug interaction [Unknown]
  - Drug level decreased [Unknown]
  - Condition aggravated [Recovered/Resolved]
  - Drug ineffective [Recovered/Resolved]
  - Generalised tonic-clonic seizure [Recovered/Resolved]
